FAERS Safety Report 21433839 (Version 1)
Quarter: 2022Q4

REPORT INFORMATION
  Report Type: Spontaneous
  Country: US (occurrence: US)
  Receive Date: 20221010
  Receipt Date: 20221010
  Transmission Date: 20230113
  Serious: Yes (Other)
  Sender: FDA-Public Use
  Company Number: US-NOVOPROD-966384

PATIENT
  Age: 14 Year
  Sex: Male
  Weight: 47.1 kg

DRUGS (3)
  1. NORDITROPIN [Interacting]
     Active Substance: SOMATROPIN
     Indication: Growth hormone deficiency
     Dosage: UNK
  2. DEXMETHYLPHENIDATE [Interacting]
     Active Substance: DEXMETHYLPHENIDATE
     Indication: Attention deficit hyperactivity disorder
     Dosage: UNK
  3. LETROZOLE [Interacting]
     Active Substance: LETROZOLE
     Indication: Growth hormone deficiency
     Dosage: UNK

REACTIONS (2)
  - Rhabdomyolysis [Unknown]
  - Drug interaction [Unknown]
